FAERS Safety Report 9055425 (Version 1)
Quarter: 2013Q1

REPORT INFORMATION
  Report Type: Report from Study
  Country: US (occurrence: US)
  Receive Date: 20130206
  Receipt Date: 20130206
  Transmission Date: 20140127
  Serious: Yes (Hospitalization)
  Sender: FDA-Public Use
  Company Number: US-PURDUE-USA-2013-0098372

PATIENT
  Age: 54 None
  Sex: Female

DRUGS (2)
  1. OXYCONTIN (NDA 22-272) [Suspect]
     Indication: PRODUCT USED FOR UNKNOWN INDICATION
     Dosage: 80 MG, TID
  2. OXYCONTIN (NDA 22-272) [Suspect]
     Dosage: 40 MG, SEE TEXT

REACTIONS (1)
  - Influenza [Not Recovered/Not Resolved]
